FAERS Safety Report 10191182 (Version 3)
Quarter: 2019Q3

REPORT INFORMATION
  Report Type: Spontaneous
  Country: US (occurrence: US)
  Receive Date: 20140523
  Receipt Date: 20190717
  Transmission Date: 20191004
  Serious: Yes (Hospitalization, Other)
  Sender: FDA-Public Use
  Company Number: US-PFIZER INC-2014140005

PATIENT
  Age: 64 Year
  Sex: Female
  Weight: 56.69 kg

DRUGS (41)
  1. DIAVAN [Suspect]
     Active Substance: ASCORBIC ACID\CHROMIUM\SELENIUM\VANADYL SULFATE
     Dosage: UNK
     Route: 065
  2. RYTHMOL [Suspect]
     Active Substance: PROPAFENONE HYDROCHLORIDE
     Dosage: UNK
     Route: 065
  3. CODEINE [Suspect]
     Active Substance: CODEINE
     Dosage: UNK
     Route: 065
  4. FERROUS SULFATE. [Concomitant]
     Active Substance: FERROUS SULFATE
     Dosage: 65 MG, UNK
  5. CALCIUM [Concomitant]
     Active Substance: CALCIUM
     Indication: OSTEOARTHRITIS
     Dosage: 1200 MG, UNK
  6. ENBREL [Suspect]
     Active Substance: ETANERCEPT
     Indication: PSORIASIS
  7. FLECTOR [Suspect]
     Active Substance: DICLOFENAC EPOLAMINE
     Dosage: UNK
     Route: 065
  8. HYDROCODONE [Suspect]
     Active Substance: HYDROCODONE
     Dosage: UNK
     Route: 065
  9. CARDIZEM CD [Concomitant]
     Active Substance: DILTIAZEM HYDROCHLORIDE
     Dosage: 240 MG, UNK
  10. LYRICA [Suspect]
     Active Substance: PREGABALIN
     Dosage: 75 MG, UNK
     Route: 065
     Dates: end: 20120320
  11. VASOTEC [Suspect]
     Active Substance: ENALAPRIL MALEATE
     Dosage: UNK
     Route: 065
  12. SACCHARIN [Suspect]
     Active Substance: SACCHARIN
     Dosage: UNK
     Route: 065
  13. CIALIS [Concomitant]
     Active Substance: TADALAFIL
     Dosage: 2.5 MG, UNK
  14. REFRESH [Concomitant]
     Active Substance: UNSPECIFIED INGREDIENT
     Dosage: UNK
  15. VITAMIN D [Concomitant]
     Active Substance: VITAMIN D NOS
     Indication: MULTIPLE SCLEROSIS
     Dosage: 5000 IU, QD
  16. AMPYRA [Suspect]
     Active Substance: DALFAMPRIDINE
     Indication: GAIT DISTURBANCE
     Dosage: 10 MG, BID
     Route: 048
     Dates: start: 20120229, end: 20120314
  17. LEVOXYL [Concomitant]
     Active Substance: LEVOTHYROXINE SODIUM
     Dosage: 175 UG, 1X/DAY
  18. XARELTO [Concomitant]
     Active Substance: RIVAROXABAN
     Indication: ATRIAL FIBRILLATION
     Dosage: 20 MG, QD
  19. ARAVA [Suspect]
     Active Substance: LEFLUNOMIDE
     Dosage: UNK
     Route: 065
  20. CYMBALTA [Concomitant]
     Active Substance: DULOXETINE HYDROCHLORIDE
     Indication: FIBROMYALGIA
     Dosage: 30 MG, UNK
  21. SPIRONOLACTONE. [Concomitant]
     Active Substance: SPIRONOLACTONE
     Indication: FLUID RETENTION
     Dosage: 12.5 MG, QD
  22. ATACAND [Concomitant]
     Active Substance: CANDESARTAN CILEXETIL
     Indication: BLOOD PRESSURE MEASUREMENT
     Dosage: 8 MG, NIGHTLY
  23. METHOTREXATE. [Suspect]
     Active Substance: METHOTREXATE
     Dosage: UNK
     Route: 065
     Dates: start: 20060818
  24. SODIUM FLUORIDE. [Suspect]
     Active Substance: SODIUM FLUORIDE
     Dosage: UNK
     Route: 065
  25. ZYRTEC [Concomitant]
     Active Substance: CETIRIZINE HYDROCHLORIDE
     Indication: SINUS CONGESTION
     Dosage: UNK
  26. LASIX [Concomitant]
     Active Substance: FUROSEMIDE
     Dosage: 20 MG, UNK
     Dates: start: 2000
  27. MIRAPEX [Concomitant]
     Active Substance: PRAMIPEXOLE DIHYDROCHLORIDE
     Indication: RESTLESS LEGS SYNDROME
     Dosage: 0.5 MG, 1X/DAY
  28. ZOSYN [Suspect]
     Active Substance: PIPERACILLIN SODIUM\TAZOBACTAM SODIUM
     Dosage: UNK
     Route: 065
  29. AMPYRA [Suspect]
     Active Substance: DALFAMPRIDINE
     Indication: MULTIPLE SCLEROSIS
  30. ASPIRIN. [Concomitant]
     Active Substance: ASPIRIN
     Dosage: 81 MG, UNK
     Dates: start: 20101108
  31. IMITREX [Concomitant]
     Active Substance: SUMATRIPTAN SUCCINATE
     Indication: MIGRAINE
     Dosage: 100 MG, AS NECESSARY
  32. PREMARIN [Concomitant]
     Active Substance: ESTROGENS, CONJUGATED
     Dosage: 1.25 MG, 1X/DAY
  33. DERMA-SMOOTHE/FS [Concomitant]
     Active Substance: FLUOCINOLONE ACETONIDE
     Indication: PSORIASIS
     Dosage: UNK UNK, AS NECESSARY
  34. ENBREL [Suspect]
     Active Substance: ETANERCEPT
     Indication: PSORIATIC ARTHROPATHY
     Dosage: 50 MG, WEEKLY
     Route: 065
     Dates: start: 20070127, end: 20070707
  35. NORVASC [Suspect]
     Active Substance: AMLODIPINE BESYLATE
     Dosage: UNK
     Route: 065
  36. FLEXERIL [Suspect]
     Active Substance: CYCLOBENZAPRINE HYDROCHLORIDE
     Dosage: UNK
     Route: 065
  37. PREDNISONE. [Suspect]
     Active Substance: PREDNISONE
     Dosage: UNK
  38. KLONOPIN [Concomitant]
     Active Substance: CLONAZEPAM
     Indication: RESTLESS LEGS SYNDROME
     Dosage: 1.5 MG, UNK
  39. NASONEX [Concomitant]
     Active Substance: MOMETASONE FUROATE
     Dosage: UNK
  40. IRON [Concomitant]
     Active Substance: IRON
     Indication: IRON DEFICIENCY
     Dosage: 65 MG, UNK
  41. TRAZODONE [Concomitant]
     Active Substance: TRAZODONE HYDROCHLORIDE
     Indication: SLEEP DISORDER
     Dosage: 200 MG, QD

REACTIONS (79)
  - Atrial fibrillation [Unknown]
  - CREST syndrome [Unknown]
  - Pulmonary hypertension [Unknown]
  - Oesophageal dilatation [Unknown]
  - Urticaria [Unknown]
  - Polyp [Unknown]
  - Drug hypersensitivity [Unknown]
  - Tendon disorder [Unknown]
  - Post-traumatic neck syndrome [Unknown]
  - Demyelination [Unknown]
  - Pneumonia [Unknown]
  - Cognitive disorder [Unknown]
  - Dizziness [Unknown]
  - Rash [Unknown]
  - Fluid retention [Unknown]
  - Constipation [Unknown]
  - Weight decreased [Unknown]
  - Exostosis [Unknown]
  - Dysphagia [Unknown]
  - Coeliac disease [Unknown]
  - Diplopia [Unknown]
  - Skin atrophy [Unknown]
  - Lip injury [Unknown]
  - Tachycardia [Unknown]
  - Knee deformity [Unknown]
  - Movement disorder [Unknown]
  - Eyelid injury [Unknown]
  - Increased appetite [Unknown]
  - Lung disorder [Unknown]
  - Tinnitus [Unknown]
  - Mouth ulceration [Unknown]
  - Pruritus [Unknown]
  - Sleep disorder [Unknown]
  - Retching [Unknown]
  - Judgement impaired [Unknown]
  - Pain [Unknown]
  - Gallbladder disorder [Unknown]
  - Ligament injury [Unknown]
  - Eye contusion [Unknown]
  - Snoring [Unknown]
  - Liver disorder [Unknown]
  - Fatigue [Unknown]
  - Spinal osteoarthritis [Unknown]
  - Cystocele [Unknown]
  - Pharyngeal swelling [Unknown]
  - Hand fracture [Unknown]
  - Balance disorder [Unknown]
  - Injury [Unknown]
  - Abdominal discomfort [Unknown]
  - Nausea [Unknown]
  - Vomiting [Unknown]
  - Oedema [Unknown]
  - Food allergy [Unknown]
  - Vertigo [Unknown]
  - Dyspnoea [Unknown]
  - Fall [Unknown]
  - Tooth fracture [Unknown]
  - Choking [Unknown]
  - Hypertension [Unknown]
  - Lacrimal structure injury [Unknown]
  - Alopecia [Unknown]
  - Contusion [Unknown]
  - Petechiae [Unknown]
  - Muscular weakness [Unknown]
  - Dyskinesia [Unknown]
  - Loss of consciousness [Unknown]
  - Orthostatic hypotension [Unknown]
  - Concussion [Unknown]
  - Multiple sclerosis [Unknown]
  - Laryngitis [Unknown]
  - Intervertebral disc disorder [Unknown]
  - Memory impairment [Unknown]
  - Blood pressure decreased [Unknown]
  - Headache [Unknown]
  - Cough [Unknown]
  - Temperature intolerance [Unknown]
  - Gait disturbance [Unknown]
  - Pain in extremity [Unknown]
  - Rhinitis [Unknown]

NARRATIVE: CASE EVENT DATE: 20070730
